FAERS Safety Report 7547074-7 (Version None)
Quarter: 2011Q2

REPORT INFORMATION
  Report Type: 
  Country: None (occurrence: None)
  Receive Date: 20110607
  Receipt Date: 20110524
  Transmission Date: 20111010
  Serious: Yes (Death)
  Sender: FDA-Public Use
  Company Number: B0722188A

PATIENT
  Sex: 0

DRUGS (4)
  1. TOPOTECAN HYDROCHLORIDE [Suspect]
     Indication: GLIOBLASTOMA MULTIFORME
     Dosage: 1.5 MG/M2/ORAL
     Route: 048
  2. BEVACIZUMAB (FORMULATION UNKNOWN) (BEVACIZUMAB) [Concomitant]
     Indication: GLIOBLASTOMA MULTIFORME
     Dosage: 10 ML/ KG
  3. TEMOZOLOMIDE (FORMULATION UNKNOWN) (TEMOZOLOMIDE) [Concomitant]
  4. RADIOTHERAPY (FORMULATION UNKNOWN) (RADIOTHERAPY) [Concomitant]

REACTIONS (1)
  - PNEUMONIA CYTOMEGALOVIRAL [None]
